FAERS Safety Report 10142021 (Version 1)
Quarter: 2014Q2

REPORT INFORMATION
  Report Type: Spontaneous
  Country: FR (occurrence: FR)
  Receive Date: 20140429
  Receipt Date: 20140429
  Transmission Date: 20141212
  Serious: Yes (Hospitalization)
  Sender: FDA-Public Use
  Company Number: FR-DSJP-DSE-2014-106500

PATIENT
  Sex: 0

DRUGS (6)
  1. ALTEISDUO [Suspect]
     Indication: HYPERTENSION
     Dosage: UNK
     Route: 048
     Dates: end: 2014
  2. ALTEISDUO [Suspect]
     Dosage: UNK
     Route: 048
     Dates: start: 201403, end: 2014
  3. LERCAN [Concomitant]
     Indication: HYPERTENSION
     Dosage: UNK
     Route: 048
     Dates: end: 2014
  4. LERCAN [Concomitant]
     Dosage: UNK
     Route: 048
     Dates: start: 201403
  5. LEVOTHYROX [Concomitant]
     Indication: PRODUCT USED FOR UNKNOWN INDICATION
     Route: 048
  6. TEMESTA                            /00273201/ [Concomitant]
     Indication: PRODUCT USED FOR UNKNOWN INDICATION
     Route: 048

REACTIONS (7)
  - Feeding disorder [Unknown]
  - Intestinal villi atrophy [Recovering/Resolving]
  - Diarrhoea [Recovered/Resolved]
  - Weight decreased [Unknown]
  - Abdominal pain [Unknown]
  - Vomiting [Unknown]
  - Hypokalaemia [Unknown]
